FAERS Safety Report 10224822 (Version 1)
Quarter: 2014Q2

REPORT INFORMATION
  Report Type: Spontaneous
  Country: US (occurrence: US)
  Receive Date: 20140609
  Receipt Date: 20140609
  Transmission Date: 20141212
  Serious: Yes (Hospitalization)
  Sender: FDA-Public Use
  Company Number: US-GLAXOSMITHKLINE-A1075085A

PATIENT
  Age: 86 Year
  Sex: Female

DRUGS (7)
  1. ADVAIR DISKUS [Suspect]
     Indication: CHRONIC OBSTRUCTIVE PULMONARY DISEASE
     Dosage: 1PUFF TWICE PER DAY
     Route: 055
  2. BREO ELLIPTA [Suspect]
     Indication: CHRONIC OBSTRUCTIVE PULMONARY DISEASE
     Dosage: 1PUFF PER DAY
     Route: 055
     Dates: start: 20140522
  3. OXYGEN [Concomitant]
  4. PRO-AIR [Concomitant]
  5. NEBULIZER [Concomitant]
  6. ATROVENT [Concomitant]
  7. INHALERS [Concomitant]

REACTIONS (6)
  - Oxygen supplementation [Unknown]
  - Hip fracture [Unknown]
  - Fall [Unknown]
  - Dyspnoea [Unknown]
  - Dyspnoea exertional [Unknown]
  - Therapeutic response changed [Unknown]
